FAERS Safety Report 7054366-7 (Version None)
Quarter: 2010Q4

REPORT INFORMATION
  Report Type: 
  Country: None (occurrence: None)
  Receive Date: 20101014
  Receipt Date: 20101007
  Transmission Date: 20110411
  Serious: Yes (Death)
  Sender: FDA-Public Use
  Company Number: 2010JP005848

PATIENT
  Sex: Male

DRUGS (8)
  1. PROGRAF [Suspect]
     Indication: STEM CELL TRANSPLANT
  2. THYMOGLOBULIN [Suspect]
     Dosage: 5 MG/KG
  3. METHOTREXATE [Concomitant]
  4. ETOPOSIDE [Concomitant]
  5. CYTARABINE [Concomitant]
  6. FLUDARABINE PHOSPHATE [Concomitant]
  7. L-PAM (MELPHALAN) [Concomitant]
  8. CYCLOPHOSPHAMIDE [Concomitant]

REACTIONS (1)
  - PNEUMONIA CYTOMEGALOVIRAL [None]
